FAERS Safety Report 20557481 (Version 1)
Quarter: 2022Q1

REPORT INFORMATION
  Report Type: Other
  Country: TR (occurrence: None)
  Receive Date: 20220307
  Receipt Date: 20220307
  Transmission Date: 20220424
  Serious: Yes (Hospitalization)
  Sender: FDA-Public Use
  Company Number: TR-ROCHE-3038631

PATIENT
  Age: 71 Year
  Sex: Male

DRUGS (5)
  1. RITUXIMAB [Suspect]
     Active Substance: RITUXIMAB
     Indication: Mantle cell lymphoma
     Route: 065
     Dates: start: 2018
  2. CEFOPERAZONE\SULBACTAM [Concomitant]
     Active Substance: CEFOPERAZONE\SULBACTAM
  3. MEROPENEM [Concomitant]
     Active Substance: MEROPENEM
  4. DEXAMETHASONE [Concomitant]
     Active Substance: DEXAMETHASONE
  5. LINEZOLID [Concomitant]
     Active Substance: LINEZOLID

REACTIONS (3)
  - COVID-19 pneumonia [Recovered/Resolved]
  - SARS-CoV-2 antibody test negative [Recovering/Resolving]
  - Lymphopenia [Unknown]

NARRATIVE: CASE EVENT DATE: 20201001
